FAERS Safety Report 10036515 (Version 3)
Quarter: 2014Q2

REPORT INFORMATION
  Report Type: Report from Study
  Country: US (occurrence: US)
  Receive Date: 20140326
  Receipt Date: 20140528
  Transmission Date: 20141212
  Serious: No
  Sender: FDA-Public Use
  Company Number: PHEH2014US001697

PATIENT
  Age: 70 Year
  Sex: Female

DRUGS (7)
  1. TASIGNA [Suspect]
     Indication: CHRONIC MYELOID LEUKAEMIA
     Dosage: 2 DF, BID
     Route: 048
     Dates: start: 201310
  2. TASIGNA [Suspect]
     Indication: BREAST CANCER
     Dosage: 300 MG, BID
     Route: 048
     Dates: start: 20131026
  3. TASIGNA [Suspect]
     Dosage: 300 MG, BID
     Route: 048
     Dates: start: 20131107
  4. ZOLPIDEM TARTRATE [Concomitant]
     Dosage: UNK UKN, UNK
  5. LORAZEPAM [Concomitant]
     Dosage: UNK UKN, UNK
  6. MEGESTROL ACETATE [Concomitant]
     Dosage: UNK UKN, UNK
  7. CICLOPIROX [Concomitant]
     Dosage: UNK UKN, UNK

REACTIONS (6)
  - Feeling abnormal [Unknown]
  - Hypersomnia [Unknown]
  - Decreased appetite [Unknown]
  - Weight decreased [Unknown]
  - Fatigue [Not Recovered/Not Resolved]
  - Pollakiuria [Not Recovered/Not Resolved]
